FAERS Safety Report 25034399 (Version 1)
Quarter: 2025Q1

REPORT INFORMATION
  Report Type: Spontaneous
  Country: US (occurrence: US)
  Receive Date: 20250304
  Receipt Date: 20250304
  Transmission Date: 20250408
  Serious: No
  Sender: ROCHE
  Company Number: US-ROCHE-10000217030

PATIENT
  Age: 75 Year
  Sex: Female
  Weight: 68.03 kg

DRUGS (13)
  1. ACTEMRA [Suspect]
     Active Substance: TOCILIZUMAB
     Indication: Rheumatoid arthritis
     Route: 058
     Dates: start: 2024
  2. CLEOCIN [Concomitant]
     Active Substance: CLINDAMYCIN PHOSPHATE
  3. NORVASC [Concomitant]
     Active Substance: AMLODIPINE BESYLATE
  4. CRESTOR [Concomitant]
     Active Substance: ROSUVASTATIN CALCIUM
  5. ASPIRIN [Concomitant]
     Active Substance: ASPIRIN
  6. ALPRAZOLAM [Concomitant]
     Active Substance: ALPRAZOLAM
  7. VITAMIN C [Concomitant]
     Active Substance: ASCORBIC ACID
  8. CALCIUM [Concomitant]
     Active Substance: CALCIUM
  9. BIOTIN [Concomitant]
     Active Substance: BIOTIN
  10. ALLEGRA [Concomitant]
     Active Substance: FEXOFENADINE HYDROCHLORIDE
  11. VITAMINS [Concomitant]
     Active Substance: VITAMINS
  12. TYLENOL [Concomitant]
     Active Substance: ACETAMINOPHEN
  13. DYMISTA [Concomitant]
     Active Substance: AZELASTINE HYDROCHLORIDE\FLUTICASONE PROPIONATE

REACTIONS (5)
  - Product dose omission issue [Unknown]
  - Device defective [Unknown]
  - Device difficult to use [Unknown]
  - Drug delivery system malfunction [Unknown]
  - No adverse event [Unknown]

NARRATIVE: CASE EVENT DATE: 20250222
